FAERS Safety Report 8302772-2 (Version None)
Quarter: 2012Q2

REPORT INFORMATION
  Report Type: 
  Country: None (occurrence: None)
  Receive Date: 20120420
  Receipt Date: 20110808
  Transmission Date: 20120825
  Serious: No
  Sender: FDA-Public Use
  Company Number: US-PFIZER INC-K201100928

PATIENT
  Age: 55 Year
  Sex: Female

DRUGS (1)
  1. AVINZA [Suspect]
     Dosage: UNK

REACTIONS (6)
  - ARTHRALGIA [None]
  - NIGHT SWEATS [None]
  - CHILLS [None]
  - PYREXIA [None]
  - INSOMNIA [None]
  - IRRITABILITY [None]
